FAERS Safety Report 9234730 (Version 3)
Quarter: 2013Q3

REPORT INFORMATION
  Report Type: Spontaneous
  Country: US (occurrence: US)
  Receive Date: 20130416
  Receipt Date: 20130814
  Transmission Date: 20140515
  Serious: No
  Sender: FDA-Public Use
  Company Number: US-PFIZER INC-2013116735

PATIENT
  Age: 46 Year
  Sex: Male

DRUGS (6)
  1. PRISTIQ [Suspect]
     Indication: DEPRESSION
     Dosage: 100 MG, 1X/DAY
     Route: 048
  2. METFORMIN [Concomitant]
     Dosage: UNK
  3. WARFARIN [Concomitant]
     Dosage: UNK
  4. LEVOTHYROXINE [Concomitant]
     Dosage: UNK
  5. DIOVANE [Concomitant]
     Dosage: UNK
  6. LANTUS [Concomitant]
     Dosage: UNK

REACTIONS (4)
  - Drug intolerance [Unknown]
  - Psychomotor hyperactivity [Unknown]
  - Energy increased [Unknown]
  - Drug effect incomplete [Unknown]
